FAERS Safety Report 6400750-1 (Version None)
Quarter: 2009Q4

REPORT INFORMATION
  Report Type: 
  Country: None (occurrence: None)
  Receive Date: 20091007
  Receipt Date: 20090730
  Transmission Date: 20100525
  Serious: Yes (Other)
  Sender: FDA-Public Use
  Company Number: 2009RR-25987

PATIENT
  Age: 36 Year
  Sex: Female

DRUGS (3)
  1. RANITIDINE [Suspect]
     Indication: DYSPEPSIA
     Dosage: 300 MG, ORAL
     Route: 048
  2. ZANTAC [Suspect]
     Indication: SKIN TEST POSITIVE
     Dosage: 10 MG/ML
  3. IBUPROFEN [Concomitant]

REACTIONS (1)
  - ANAPHYLACTIC REACTION [None]
